FAERS Safety Report 5535030-X (Version None)
Quarter: 2007Q4

REPORT INFORMATION
  Report Type: 
  Country: None (occurrence: None)
  Receive Date: 20071203
  Receipt Date: 20071121
  Transmission Date: 20080405
  Serious: Yes (Other)
  Sender: FDA-Public Use
  Company Number: 008781

PATIENT
  Age: 27 Year
  Sex: Female
  Weight: 56.7 kg

DRUGS (1)
  1. CLARAVIS [Suspect]
     Indication: ACNE
     Dosage: 20MG, TID, ORAL
     Route: 048
     Dates: start: 20060507, end: 20060617

REACTIONS (6)
  - ABORTION SPONTANEOUS [None]
  - ACNE [None]
  - DRUG EXPOSURE DURING PREGNANCY [None]
  - DRY SKIN [None]
  - LIP DRY [None]
  - UNINTENDED PREGNANCY [None]
